FAERS Safety Report 4934729-3 (Version None)
Quarter: 2006Q1

REPORT INFORMATION
  Report Type: 
  Country: None (occurrence: None)
  Receive Date: 20060307
  Receipt Date: 20051013
  Transmission Date: 20060701
  Serious: Yes (Hospitalization, Other)
  Sender: FDA-Public Use
  Company Number: US-MERCK-0510USA07553

PATIENT
  Age: 58 Year
  Sex: Male
  Weight: 100 kg

DRUGS (20)
  1. VIOXX [Suspect]
     Indication: BACK PAIN
     Route: 048
     Dates: start: 20001001, end: 20040925
  2. VIOXX [Suspect]
     Route: 065
  3. VIOXX [Suspect]
     Route: 065
     Dates: start: 20000901
  4. VIOXX [Suspect]
     Indication: OSTEOARTHRITIS
     Route: 048
     Dates: start: 20001001, end: 20040925
  5. VIOXX [Suspect]
     Route: 065
  6. VIOXX [Suspect]
     Route: 065
     Dates: start: 20000901
  7. FLOMAX (MORNIFLUMATE) [Concomitant]
     Route: 065
  8. SINGULAIR [Concomitant]
     Route: 048
  9. PREVACID [Concomitant]
     Route: 065
  10. LIPITOR [Concomitant]
     Route: 065
  11. PLAVIX [Concomitant]
     Route: 065
  12. ASPIRIN [Concomitant]
     Route: 065
  13. FLOVENT [Concomitant]
     Route: 065
  14. COMBIVENT [Concomitant]
     Route: 065
  15. ATENOLOL [Concomitant]
     Indication: CARDIAC DISORDER
     Route: 065
  16. RELAFEN [Concomitant]
     Indication: ARTHRITIS
     Route: 065
  17. CELEBREX [Concomitant]
     Indication: ARTHRITIS
     Route: 065
  18. DAYPRO [Concomitant]
     Indication: ARTHRITIS
     Route: 065
  19. BEXTRA [Concomitant]
     Indication: ARTHRITIS
     Route: 065
  20. MOBIC [Concomitant]
     Indication: ARTHRITIS
     Route: 065

REACTIONS (14)
  - ANXIETY [None]
  - ARTERIOSCLEROSIS [None]
  - BRONCHITIS [None]
  - CEREBROVASCULAR ACCIDENT [None]
  - CORONARY ARTERY DISEASE [None]
  - DYSPNOEA EXERTIONAL [None]
  - GASTROINTESTINAL DISORDER [None]
  - HIGH DENSITY LIPOPROTEIN DECREASED [None]
  - HYPOKINESIA [None]
  - MUSCULOSKELETAL CHEST PAIN [None]
  - MUSCULOSKELETAL PAIN [None]
  - MYOCARDIAL ISCHAEMIA [None]
  - PARAESTHESIA [None]
  - TRANSIENT ISCHAEMIC ATTACK [None]
